FAERS Safety Report 22079838 (Version 1)
Quarter: 2023Q1

REPORT INFORMATION
  Report Type: Report from Study
  Country: US (occurrence: US)
  Receive Date: 20230309
  Receipt Date: 20230309
  Transmission Date: 20230417
  Serious: Yes (Death)
  Sender: FDA-Public Use
  Company Number: US-XERIS PHARMACEUTICALS-2023XER00049

PATIENT
  Age: 74 Year
  Sex: Male

DRUGS (1)
  1. RECORLEV [Suspect]
     Active Substance: LEVOKETOCONAZOLE
     Indication: Pituitary-dependent Cushing^s syndrome
     Dosage: 1 TABLET (150 MG), 2X/DAY
     Route: 048
     Dates: start: 20221223

REACTIONS (1)
  - Death [Fatal]

NARRATIVE: CASE EVENT DATE: 20230224
